FAERS Safety Report 26010803 (Version 1)
Quarter: 2025Q4

REPORT INFORMATION
  Report Type: Spontaneous
  Country: GB (occurrence: GB)
  Receive Date: 20251107
  Receipt Date: 20251107
  Transmission Date: 20260117
  Serious: Yes (Other)
  Sender: ALEXION PHARMACEUTICALS
  Company Number: GB-ASTRAZENECA-202510GLO024328GB

PATIENT
  Age: 83 Year
  Sex: Female
  Weight: 93 kg

DRUGS (5)
  1. OMEPRAZOLE [Suspect]
     Active Substance: OMEPRAZOLE
     Indication: Gastrooesophageal reflux disease
     Dosage: TAKE ONE DAILY FOR ACID REFLUX, TAKING MINIMUM TO CONTROL SYMPOTMS (TRY EVERY OTHER DAY)
     Route: 065
     Dates: start: 20250410, end: 20250616
  2. OMEPRAZOLE [Suspect]
     Active Substance: OMEPRAZOLE
     Dosage: UNK
     Route: 065
  3. NAPROXEN [Suspect]
     Active Substance: NAPROXEN
     Indication: Pain
     Dosage: 1 DOSAGE FORM IN 12 HOUR
     Route: 065
     Dates: start: 20250516, end: 20250616
  4. NAPROXEN [Suspect]
     Active Substance: NAPROXEN
     Dosage: TAKE ONE TWICE DAILY FOR PAIN, WITH FOOD
     Route: 065
     Dates: start: 20250528, end: 20250616
  5. SPIKEVAX [Suspect]
     Active Substance: CX-046684
     Dosage: 0.5 MILLILITRE IN

REACTIONS (5)
  - Blister [Unknown]
  - Mouth ulceration [Unknown]
  - Vulvovaginal ulceration [Unknown]
  - Oral mucosal blistering [Unknown]
  - Genital blister [Unknown]

NARRATIVE: CASE EVENT DATE: 20250602
